FAERS Safety Report 21528872 (Version 1)
Quarter: 2022Q4

REPORT INFORMATION
  Report Type: Spontaneous
  Country: GB (occurrence: GB)
  Receive Date: 20221031
  Receipt Date: 20221031
  Transmission Date: 20230113
  Serious: Yes (Other)
  Sender: FDA-Public Use
  Company Number: None

PATIENT
  Age: 21 Year
  Sex: Female
  Weight: 91.5 kg

DRUGS (4)
  1. MIRTAZAPINE [Suspect]
     Active Substance: MIRTAZAPINE
     Indication: Anxiety disorder
     Dosage: 7.5 DOSAGE FORM, HS (AT NIGHT)
     Route: 065
     Dates: start: 20221007, end: 20221018
  2. MIRTAZAPINE [Suspect]
     Active Substance: MIRTAZAPINE
     Dosage: 15 MILLIGRAM, HS (AT NIGHT )
     Route: 065
     Dates: start: 20220920, end: 20221007
  3. BUSPIRONE [Concomitant]
     Active Substance: BUSPIRONE HYDROCHLORIDE
     Indication: Anxiety disorder
     Dosage: 5 MILLIGRAM, TID
     Route: 065
     Dates: start: 20220914
  4. ZELLETA [Concomitant]
     Indication: Heavy menstrual bleeding
     Dosage: 75 MICROGRAM, QD
     Route: 065
     Dates: start: 20220930

REACTIONS (1)
  - Depressed level of consciousness [Recovering/Resolving]

NARRATIVE: CASE EVENT DATE: 20221013
